FAERS Safety Report 23971065 (Version 1)
Quarter: 2024Q2

REPORT INFORMATION
  Report Type: Report from Study
  Country: JP (occurrence: JP)
  Receive Date: 20240613
  Receipt Date: 20240613
  Transmission Date: 20240716
  Serious: Yes (Other)
  Sender: FDA-Public Use
  Company Number: JP-teijin-202401932_XEO_P_1

PATIENT
  Age: 80 Year
  Sex: Female
  Weight: 52.9 kg

DRUGS (3)
  1. XEOMIN [Suspect]
     Active Substance: INCOBOTULINUMTOXINA
     Indication: Muscle spasticity
     Route: 030
     Dates: start: 20240209, end: 20240209
  2. XEOMIN [Suspect]
     Active Substance: INCOBOTULINUMTOXINA
     Route: 030
     Dates: start: 20230825, end: 20230825
  3. XEOMIN [Suspect]
     Active Substance: INCOBOTULINUMTOXINA
     Route: 030
     Dates: start: 20231117, end: 20231117

REACTIONS (1)
  - Vascular parkinsonism [Recovering/Resolving]

NARRATIVE: CASE EVENT DATE: 20240425
